FAERS Safety Report 26066932 (Version 3)
Quarter: 2025Q4

REPORT INFORMATION
  Report Type: Spontaneous
  Country: EU (occurrence: EU)
  Receive Date: 20251119
  Receipt Date: 20251128
  Transmission Date: 20260117
  Serious: Yes (Other)
  Sender: MERCK SHARP & DOHME LLC
  Company Number: EU-009507513-2349769

PATIENT
  Age: 65 Year
  Sex: Female

DRUGS (2)
  1. PEMBROLIZUMAB [Suspect]
     Active Substance: PEMBROLIZUMAB
  2. LENVATINIB [Suspect]
     Active Substance: LENVATINIB

REACTIONS (7)
  - Posterior reversible encephalopathy syndrome [Recovering/Resolving]
  - Electrocardiogram T wave inversion [Recovering/Resolving]
  - Troponin increased [Recovering/Resolving]
  - Electrocardiogram QT prolonged [Recovering/Resolving]
  - General physical health deterioration [Recovering/Resolving]
  - Hypertension [Recovering/Resolving]
  - Myocarditis [Recovering/Resolving]
